FAERS Safety Report 9613884 (Version 6)
Quarter: 2014Q1

REPORT INFORMATION
  Report Type: Report from Study
  Country: CA (occurrence: CA)
  Receive Date: 20131010
  Receipt Date: 20140319
  Transmission Date: 20141002
  Serious: Yes (Hospitalization, Other)
  Sender: FDA-Public Use
  Company Number: PHHY2013CA113680

PATIENT
  Age: 63 Year
  Sex: Female

DRUGS (3)
  1. GLEEVEC [Suspect]
     Indication: GASTROINTESTINAL STROMAL TUMOUR
     Dosage: 400 MG, DAILY
     Route: 048
     Dates: start: 20130919
  2. GLEEVEC [Suspect]
     Dosage: 400 MG, QD
     Route: 048
     Dates: end: 20131121
  3. ELTROXIN [Concomitant]
     Indication: THYROID NEOPLASM
     Dosage: UNK UKN, UNK

REACTIONS (22)
  - Infection [Unknown]
  - Dehydration [Unknown]
  - White blood cell count decreased [Unknown]
  - Vomiting [Unknown]
  - Pyrexia [Unknown]
  - Asthenia [Unknown]
  - Thyroid neoplasm [Unknown]
  - Haematochezia [Unknown]
  - Skin sensitisation [Unknown]
  - Pain [Unknown]
  - Alopecia [Unknown]
  - Dysphagia [Unknown]
  - Swelling face [Not Recovered/Not Resolved]
  - Eye swelling [Unknown]
  - Swelling [Recovering/Resolving]
  - Arthralgia [Recovering/Resolving]
  - Myalgia [Unknown]
  - Dry skin [Unknown]
  - Joint swelling [Unknown]
  - Constipation [Unknown]
  - Periorbital oedema [Not Recovered/Not Resolved]
  - Blood urine [Unknown]
